FAERS Safety Report 7507386-X (Version None)
Quarter: 2011Q2

REPORT INFORMATION
  Report Type: 
  Country: None (occurrence: None)
  Receive Date: 20110526
  Receipt Date: 20110513
  Transmission Date: 20111010
  Serious: Yes (Other)
  Sender: FDA-Public Use
  Company Number: CA-WATSON-2011-06757

PATIENT

DRUGS (2)
  1. METFFORMIN HYDROCHLORIDE [Suspect]
     Indication: DIABETES MELLITUS
     Dosage: 500 MG, BID
     Route: 048
     Dates: start: 20110318, end: 20110325
  2. METFFORMIN HYDROCHLORIDE [Suspect]
     Dosage: 500 MG, DAILY
     Route: 048
     Dates: start: 20110311, end: 20110317

REACTIONS (1)
  - RASH PUSTULAR [None]
